FAERS Safety Report 8548611-6 (Version None)
Quarter: 2012Q3

REPORT INFORMATION
  Report Type: 
  Country: None (occurrence: None)
  Receive Date: 20120730
  Receipt Date: 20120718
  Transmission Date: 20120928
  Serious: Yes (Hospitalization)
  Sender: FDA-Public Use
  Company Number: US-BAYER-2011-116663

PATIENT
  Age: 21 Year
  Sex: Female
  Weight: 95.238 kg

DRUGS (3)
  1. YASMIN [Suspect]
     Dosage: UNK
     Dates: start: 20050101, end: 20090101
  2. HYDROCODONE BITARTRATE + ACETAMINOPHEN [Concomitant]
     Dosage: UNK
     Dates: start: 20081018
  3. YAZ [Suspect]
     Dosage: UNK
     Dates: start: 20050101, end: 20090101

REACTIONS (3)
  - CHOLECYSTITIS CHRONIC [None]
  - GALLBLADDER DISORDER [None]
  - PAIN [None]
